FAERS Safety Report 9809833 (Version 2)
Quarter: 2015Q1

REPORT INFORMATION
  Report Type: Spontaneous
  Country: US (occurrence: US)
  Receive Date: 20140110
  Receipt Date: 20150217
  Transmission Date: 20150721
  Serious: Yes (Other)
  Sender: FDA-Public Use
  Company Number: US-SANOFI-AVENTIS-2013SA067838

PATIENT
  Age: 50 Year

DRUGS (2)
  1. PLAVIX [Suspect]
     Active Substance: CLOPIDOGREL BISULFATE
     Indication: MYOCARDIAL INFARCTION
     Route: 065
     Dates: start: 20070601, end: 20111230
  2. ASPIRIN. [Concomitant]
     Active Substance: ASPIRIN
     Dates: start: 20060101, end: 20070601

REACTIONS (5)
  - Gastrointestinal haemorrhage [Unknown]
  - Myocardial infarction [Unknown]
  - Amnesia [Unknown]
  - Haemorrhage [Unknown]
  - Cardiac failure [Unknown]

NARRATIVE: CASE EVENT DATE: 201107
